FAERS Safety Report 9706171 (Version 1)
Quarter: 2013Q4

REPORT INFORMATION
  Report Type: Spontaneous
  Country: US (occurrence: US)
  Receive Date: 20131124
  Receipt Date: 20131124
  Transmission Date: 20140711
  Serious: No
  Sender: FDA-Public Use
  Company Number: US-TEVA-445915USA

PATIENT
  Age: 46 Year
  Sex: Female
  Weight: 63.56 kg

DRUGS (1)
  1. COPAXONE [Suspect]
     Indication: RELAPSING-REMITTING MULTIPLE SCLEROSIS
     Dates: start: 201307

REACTIONS (1)
  - Weight increased [Not Recovered/Not Resolved]
